FAERS Safety Report 5381285-4 (Version None)
Quarter: 2007Q3

REPORT INFORMATION
  Report Type: 
  Country: None (occurrence: None)
  Receive Date: 20070702
  Receipt Date: 20070406
  Transmission Date: 20080115
  Serious: Yes (Hospitalization)
  Sender: FDA-Public Use
  Company Number: SPV1-2007-02115

PATIENT
  Age: 57 Year
  Sex: Male

DRUGS (3)
  1. PENTASA [Suspect]
     Indication: COLITIS ULCERATIVE
     Dosage: 1 G DAILY, RECTAL
     Route: 054
     Dates: start: 20060314, end: 20060529
  2. PENTASA [Suspect]
     Indication: COLITIS ULCERATIVE
     Dosage: 2250 MG DAILY, ORAL
     Route: 048
     Dates: start: 20060314, end: 20060530
  3. BETAMETHASONE [Concomitant]

REACTIONS (1)
  - HAEMATOCHEZIA [None]
